FAERS Safety Report 9210967 (Version 1)
Quarter: 2013Q2

REPORT INFORMATION
  Report Type: Spontaneous
  Country: DE (occurrence: DE)
  Receive Date: 20130404
  Receipt Date: 20130404
  Transmission Date: 20140414
  Serious: Yes (Other)
  Sender: FDA-Public Use
  Company Number: DE-B.I. PHARMACEUTICALS,INC./RIDGEFIELD-2012-DE-01481DE

PATIENT
  Age: 88 Year
  Sex: Female

DRUGS (6)
  1. PRADAXA [Suspect]
     Dates: start: 20120604
  2. CLOTRIMOXAZOL [Concomitant]
     Indication: URINARY TRACT INFECTION
  3. CHLORPROTEXIN [Concomitant]
     Indication: SLEEP DISORDER
  4. BISOPROLOL [Concomitant]
  5. THORASEMID [Concomitant]
  6. RISPERDAL [Concomitant]
     Indication: ILL-DEFINED DISORDER

REACTIONS (1)
  - Thrombocytopenia [Not Recovered/Not Resolved]
